FAERS Safety Report 16712053 (Version 1)
Quarter: 2019Q3

REPORT INFORMATION
  Report Type: Spontaneous
  Country: FR (occurrence: FR)
  Receive Date: 20190816
  Receipt Date: 20190816
  Transmission Date: 20191004
  Serious: Yes (Hospitalization, Other)
  Sender: FDA-Public Use
  Company Number: FR-INDIVIOR US-INDV-121078-2019

PATIENT
  Age: 47 Year
  Sex: Male

DRUGS (1)
  1. SUBUTEX [Suspect]
     Active Substance: BUPRENORPHINE HYDROCHLORIDE
     Indication: PRODUCT USED FOR UNKNOWN INDICATION
     Dosage: 3 MILLIGRAM, Q12H
     Route: 060
     Dates: start: 2019, end: 20190719

REACTIONS (4)
  - Inappropriate schedule of product administration [Recovered/Resolved]
  - Wrong technique in product usage process [Recovered/Resolved]
  - Drug withdrawal syndrome [Recovered/Resolved]
  - Pneumonia aspiration [Recovering/Resolving]

NARRATIVE: CASE EVENT DATE: 2019
